FAERS Safety Report 12844112 (Version 1)
Quarter: 2016Q4

REPORT INFORMATION
  Report Type: Spontaneous
  Country: GB (occurrence: GB)
  Receive Date: 20161013
  Receipt Date: 20161013
  Transmission Date: 20170207
  Serious: Yes (Other)
  Sender: FDA-Public Use
  Company Number: GB-009507513-1610GBR004667

PATIENT
  Sex: Male

DRUGS (3)
  1. RIBAVIRIN. [Suspect]
     Active Substance: RIBAVIRIN
  2. INTERFERON (UNSPECIFIED) [Suspect]
     Active Substance: UNSPECIFIED INGREDIENT
  3. ANTIMICROBIAL (UNSPECIFIED) [Suspect]
     Active Substance: UNSPECIFIED INGREDIENT

REACTIONS (1)
  - Renal failure [Unknown]
